FAERS Safety Report 23517767 (Version 1)
Quarter: 2024Q1

REPORT INFORMATION
  Report Type: Spontaneous
  Country: US (occurrence: US)
  Receive Date: 20240213
  Receipt Date: 20240213
  Transmission Date: 20240410
  Serious: Yes (Hospitalization)
  Sender: FDA-Public Use
  Company Number: US-MYLANLABS-2024M1013911

PATIENT
  Age: 73 Year
  Sex: Male

DRUGS (1)
  1. POMALIDOMIDE [Suspect]
     Active Substance: POMALIDOMIDE
     Indication: Plasma cell myeloma
     Dosage: UNK UNK, CYCLE, INTERMITTENTLY FOR AROUND THE LAST SIX YEARS, AND THE MOST RECENT CYCLE HAD?.
     Route: 065

REACTIONS (4)
  - Restrictive pulmonary disease [Recovering/Resolving]
  - Pulmonary fibrosis [Recovering/Resolving]
  - Sepsis [Recovering/Resolving]
  - Pneumonia pseudomonal [Recovering/Resolving]
